FAERS Safety Report 24845470 (Version 3)
Quarter: 2025Q4

REPORT INFORMATION
  Report Type: Report from Study
  Country: CA (occurrence: CA)
  Receive Date: 20250115
  Receipt Date: 20251125
  Transmission Date: 20260117
  Serious: Yes (Other)
  Sender: TAKEDA
  Company Number: CA-TAKEDA-2025TUS003450

PATIENT
  Age: 36 Year
  Sex: Male
  Weight: 35.374 kg

DRUGS (6)
  1. VEDOLIZUMAB [Suspect]
     Active Substance: VEDOLIZUMAB
     Indication: Colitis ulcerative
     Dosage: 300 MILLIGRAM
  2. VEDOLIZUMAB [Suspect]
     Active Substance: VEDOLIZUMAB
     Indication: Colitis ulcerative
     Dosage: 108 MILLIGRAM, Q2WEEKS
     Dates: start: 20250220
  3. VEDOLIZUMAB [Suspect]
     Active Substance: VEDOLIZUMAB
     Dosage: 108 MILLIGRAM, Q2WEEKS
  4. PREDNISONE [Concomitant]
     Active Substance: PREDNISONE
     Dosage: UNK
  5. IRON [Concomitant]
     Active Substance: IRON
     Indication: Supplementation therapy
     Dosage: 300 MILLIGRAM, QD
  6. RAMIPRIL [Concomitant]
     Active Substance: RAMIPRIL
     Indication: Blood pressure measurement
     Dosage: 2.5 MILLIGRAM, QD

REACTIONS (11)
  - Haematochezia [Unknown]
  - Frequent bowel movements [Unknown]
  - Memory impairment [Unknown]
  - Affective disorder [Unknown]
  - Brain fog [Unknown]
  - Weight decreased [Unknown]
  - Tuberculin test positive [Unknown]
  - Social problem [Unknown]
  - Impaired work ability [Unknown]
  - Asthenia [Unknown]
  - Fatigue [Unknown]
